FAERS Safety Report 13300486 (Version 1)
Quarter: 2017Q1

REPORT INFORMATION
  Report Type: Spontaneous
  Country: US (occurrence: US)
  Receive Date: 20170307
  Receipt Date: 20170307
  Transmission Date: 20170428
  Serious: No
  Sender: FDA-Public Use
  Company Number: US-AUROBINDO-AUR-APU-2016-03419

PATIENT
  Age: 75 Year
  Sex: Female
  Weight: 77.98 kg

DRUGS (1)
  1. METFORMIN HYDROCHLORIDE TABLETS USP 500 MG [Suspect]
     Active Substance: METFORMIN HYDROCHLORIDE
     Indication: DIABETES MELLITUS
     Dosage: THREE PILLS PER DAY, 3 TIMES A DAY

REACTIONS (2)
  - Product substitution issue [Not Recovered/Not Resolved]
  - Abdominal pain [Not Recovered/Not Resolved]
